FAERS Safety Report 9058625 (Version 1)
Quarter: 2013Q1

REPORT INFORMATION
  Report Type: Report from Study
  Country: CA (occurrence: CA)
  Receive Date: 20130211
  Receipt Date: 20130211
  Transmission Date: 20140127
  Serious: Yes (Other)
  Sender: FDA-Public Use
  Company Number: CA-JNJFOC-20130203010

PATIENT
  Sex: Female
  Weight: 135.17 kg

DRUGS (1)
  1. REMICADE [Suspect]
     Indication: PYODERMA GANGRENOSUM
     Route: 042
     Dates: end: 201205

REACTIONS (2)
  - Gait disturbance [Unknown]
  - Hypokinesia [Unknown]
